FAERS Safety Report 9066805 (Version 1)
Quarter: 2013Q1

REPORT INFORMATION
  Report Type: Spontaneous
  Country: JP (occurrence: JP)
  Receive Date: 20130214
  Receipt Date: 20130214
  Transmission Date: 20140127
  Serious: Yes (Death)
  Sender: FDA-Public Use
  Company Number: JP-GLAXOSMITHKLINE-B0862487A

PATIENT
  Age: 67 None
  Sex: Female
  Weight: 55 kg

DRUGS (24)
  1. SAMTIREL [Suspect]
     Indication: ANTIFUNGAL PROPHYLAXIS
     Dosage: 1500MG PER DAY
     Route: 048
     Dates: start: 20120915, end: 20121025
  2. ZANTAC [Suspect]
     Dosage: 75MG TWICE PER DAY
     Route: 048
     Dates: start: 20120907, end: 20120913
  3. PREDNISOLONE [Suspect]
     Route: 048
     Dates: start: 20110312
  4. ENDOXAN [Concomitant]
     Route: 048
     Dates: start: 201207
  5. PRIDOL [Concomitant]
     Route: 042
     Dates: start: 20120925, end: 20120927
  6. TRIAZOLAM [Concomitant]
     Dosage: .125MG PER DAY
     Route: 048
     Dates: start: 20120907, end: 20121010
  7. SILECE [Concomitant]
     Dosage: 1MG PER DAY
     Route: 048
     Dates: start: 20120907
  8. PARIET [Concomitant]
     Dosage: 10MG PER DAY
     Route: 048
     Dates: start: 20120912
  9. PRIMOBOLAN [Concomitant]
     Dosage: 2.5MG TWICE PER DAY
     Route: 048
     Dates: start: 20120907, end: 20121010
  10. PYRIDOXAL PHOSPHATE [Concomitant]
     Dosage: 10MG TWICE PER DAY
     Dates: start: 20120907
  11. METHYCOBAL [Concomitant]
     Dosage: 166.7MCG THREE TIMES PER DAY
     Route: 048
     Dates: start: 20120907
  12. WARFARIN [Concomitant]
     Dosage: .75MG PER DAY
     Route: 048
     Dates: start: 20120905
  13. BASEN [Concomitant]
     Dosage: .06MG THREE TIMES PER DAY
     Route: 048
     Dates: start: 20120913
  14. RULID [Concomitant]
     Dosage: 75MG TWICE PER DAY
     Route: 048
     Dates: start: 20120915
  15. VALTREX [Concomitant]
     Dosage: 250MG TWICE PER DAY
     Route: 048
     Dates: start: 20120925, end: 20120929
  16. ITRIZOLE [Concomitant]
     Dosage: 200MG PER DAY
     Route: 048
     Dates: start: 20121005, end: 20121022
  17. VIDAZA [Concomitant]
     Indication: MYELODYSPLASTIC SYNDROME
     Dosage: 100MG PER DAY
     Route: 048
     Dates: start: 20121005, end: 20121011
  18. MAXIPIME [Concomitant]
     Dosage: 1G THREE TIMES PER DAY
     Route: 042
     Dates: start: 20121004, end: 20121022
  19. ZOSYN [Concomitant]
     Dosage: 4.5G THREE TIMES PER DAY
     Dates: start: 20121022, end: 20121025
  20. FUNGUARD [Concomitant]
     Dosage: 150MG PER DAY
     Route: 042
     Dates: start: 20121023
  21. TEICOPLANIN [Concomitant]
     Dosage: 400MG PER DAY
     Route: 042
     Dates: start: 20121023
  22. ACUATIM [Concomitant]
     Dosage: 10G PER DAY
     Route: 061
     Dates: start: 20120915
  23. ARASENA-A [Concomitant]
     Dosage: 5G PER DAY
     Route: 061
     Dates: start: 20120920
  24. MAGMITT [Concomitant]
     Dosage: 330MG PER DAY
     Route: 048
     Dates: start: 20120919

REACTIONS (2)
  - Disease progression [Fatal]
  - Hepatic function abnormal [Recovering/Resolving]
